FAERS Safety Report 17683448 (Version 1)
Quarter: 2020Q2

REPORT INFORMATION
  Report Type: Spontaneous
  Country: US (occurrence: US)
  Receive Date: 20200417
  Receipt Date: 20200417
  Transmission Date: 20200714
  Serious: Yes (Hospitalization)
  Sender: FDA-Public Use
  Company Number: None

PATIENT
  Age: 47 Year
  Sex: Male

DRUGS (1)
  1. CEFEPIME (CEFEPIME HCL 1GM/VIL INJ) [Suspect]
     Active Substance: CEFEPIME HYDROCHLORIDE
     Indication: CELLULITIS
     Dosage: ?          OTHER STRENGTH:1 GM/VIL;?
     Dates: start: 20190423, end: 20190423

REACTIONS (1)
  - Rash [None]

NARRATIVE: CASE EVENT DATE: 20190423
